FAERS Safety Report 5523154-2 (Version None)
Quarter: 2007Q4

REPORT INFORMATION
  Report Type: 
  Country: None (occurrence: None)
  Receive Date: 20071121
  Receipt Date: 20071109
  Transmission Date: 20080405
  Serious: Yes (Death, Hospitalization)
  Sender: FDA-Public Use
  Company Number: HQWYE308810FEB03

PATIENT
  Sex: Female

DRUGS (2)
  1. PREMPRO [Suspect]
     Dosage: 0.625MG/UNSPECIFIED
     Route: 048
     Dates: start: 19980101
  2. PREMARIN [Suspect]

REACTIONS (3)
  - BREAST PAIN [None]
  - BREAST TENDERNESS [None]
  - DEEP VEIN THROMBOSIS [None]
